FAERS Safety Report 18161027 (Version 2)
Quarter: 2020Q4

REPORT INFORMATION
  Report Type: Report from Study
  Country: US (occurrence: US)
  Receive Date: 20200818
  Receipt Date: 20201008
  Transmission Date: 20210113
  Serious: No
  Sender: FDA-Public Use
  Company Number: NVSC2020US225664

PATIENT
  Sex: Male

DRUGS (2)
  1. COSENTYX [Suspect]
     Active Substance: SECUKINUMAB
     Indication: PRODUCT USED FOR UNKNOWN INDICATION
     Dosage: UNK UNK, UNKNOWN
     Route: 065
     Dates: start: 2020
  2. COSENTYX [Suspect]
     Active Substance: SECUKINUMAB
     Dosage: UNK UNK, UNKNOWN
     Route: 065
     Dates: start: 202005

REACTIONS (3)
  - Psoriasis [Unknown]
  - Ear infection [Unknown]
  - Infection [Unknown]
